FAERS Safety Report 5829808-2 (Version None)
Quarter: 2008Q3

REPORT INFORMATION
  Report Type: 
  Country: None (occurrence: None)
  Receive Date: 20080801
  Receipt Date: 20080728
  Transmission Date: 20090109
  Serious: No
  Sender: FDA-Public Use
  Company Number: IE-WYE-G01422108

PATIENT
  Sex: Male

DRUGS (5)
  1. EFFEXOR XR [Suspect]
     Indication: DEPRESSION
     Dosage: 225 MG FREQUENCY UNKNOWN
     Route: 048
     Dates: start: 20070828, end: 20070101
  2. EFFEXOR XR [Suspect]
     Dosage: 75 MG FREQUENCY UNKNOWN
     Route: 048
     Dates: start: 20070101, end: 20070901
  3. EFFEXOR XR [Suspect]
     Dosage: 225 MG FREQUENCY UNKNOWN
     Route: 048
     Dates: start: 20070904, end: 20080301
  4. EFFEXOR XR [Suspect]
     Dosage: 150 MG FREQUENCY UNKNOWN
     Route: 048
     Dates: start: 20080301, end: 20080301
  5. EFFEXOR XR [Suspect]
     Dosage: 75 FREQUENCY UNKNOWN
     Route: 048
     Dates: start: 20080301, end: 20080401

REACTIONS (6)
  - DRUG WITHDRAWAL SYNDROME [None]
  - HALLUCINATION, AUDITORY [None]
  - HALLUCINATION, TACTILE [None]
  - HALLUCINATION, VISUAL [None]
  - TINNITUS [None]
  - VISUAL IMPAIRMENT [None]
